FAERS Safety Report 11621885 (Version 1)
Quarter: 2015Q4

REPORT INFORMATION
  Report Type: Report from Study
  Country: US (occurrence: US)
  Receive Date: 20151013
  Receipt Date: 20151013
  Transmission Date: 20160304
  Serious: Yes (Death)
  Sender: FDA-Public Use
  Company Number: US-AMGEN-USASP2014024627

PATIENT
  Age: 57 Year
  Sex: Female

DRUGS (25)
  1. DECADRON [Concomitant]
     Active Substance: DEXAMETHASONE
     Dosage: 4 MG, UNK
     Route: 042
  2. GEMZAR [Concomitant]
     Active Substance: GEMCITABINE HYDROCHLORIDE
     Dosage: 2000 MG, UNK
  3. ALOXI [Concomitant]
     Active Substance: PALONOSETRON HYDROCHLORIDE
     Dosage: 0.25 MG, UNK
     Route: 042
  4. FERRLECIT                          /00023541/ [Concomitant]
     Dosage: 125 MG, UNK
  5. HERCEPTIN [Suspect]
     Active Substance: TRASTUZUMAB
     Dosage: 599 MG, UNK
     Route: 042
  6. XGEVA [Concomitant]
     Active Substance: DENOSUMAB
     Dosage: 120 MG, UNK
     Route: 058
  7. MORPHINE [Concomitant]
     Active Substance: MORPHINE
     Dosage: UNK UNK, ONCE IN 12 HOURS AS NEEDED
     Route: 048
  8. HERCEPTIN [Suspect]
     Active Substance: TRASTUZUMAB
     Dosage: 564 MG, UNK
     Route: 042
     Dates: start: 20080610
  9. HERCEPTIN [Suspect]
     Active Substance: TRASTUZUMAB
     Dosage: 588 MG, UNK
     Route: 042
  10. NAVELBINE [Concomitant]
     Active Substance: VINORELBINE TARTRATE
     Dosage: 43 MG, UNK
     Route: 042
  11. DECADRON [Concomitant]
     Active Substance: DEXAMETHASONE
     Dosage: 8 MG, UNK
     Route: 042
  12. HEPARIN [Concomitant]
     Active Substance: HEPARIN SODIUM
     Dosage: UNK
  13. CARBOPLATIN. [Concomitant]
     Active Substance: CARBOPLATIN
     Dosage: 230 MG, UNK
  14. PACLITAXEL. [Concomitant]
     Active Substance: PACLITAXEL
     Dosage: 160 MG, UNK
  15. HERCEPTIN [Suspect]
     Active Substance: TRASTUZUMAB
     Dosage: 399 MG, UNK
     Route: 042
  16. NEULASTA [Concomitant]
     Active Substance: PEGFILGRASTIM
     Dosage: UNK
  17. NEUPOGEN [Suspect]
     Active Substance: FILGRASTIM
     Indication: PRODUCT USED FOR UNKNOWN INDICATION
     Dosage: 300 MG, UNK
     Route: 058
     Dates: start: 20111012
  18. HERCEPTIN [Suspect]
     Active Substance: TRASTUZUMAB
     Indication: BREAST CANCER
     Dosage: 375 MG, UNK
     Route: 042
  19. HERCEPTIN [Suspect]
     Active Substance: TRASTUZUMAB
     Indication: LYMPHOEDEMA
     Dosage: 189 MG, 1 IN 1 WK
     Route: 042
     Dates: start: 20071107
  20. ZOFRAN [Concomitant]
     Active Substance: ONDANSETRON HYDROCHLORIDE
     Dosage: 16 MG, UNK
     Route: 048
  21. ABRAXANE [Concomitant]
     Active Substance: PACLITAXEL
     Dosage: 160 MG, UNK
  22. HERCEPTIN [Suspect]
     Active Substance: TRASTUZUMAB
     Dosage: 378 MG, UNK
     Route: 042
  23. DENOSUMAB [Concomitant]
     Active Substance: DENOSUMAB
     Dosage: 120 MG, UNK
  24. DECADRON [Concomitant]
     Active Substance: DEXAMETHASONE
     Dosage: 10 MG, UNK
     Route: 042
  25. GEMZAR [Concomitant]
     Active Substance: GEMCITABINE HYDROCHLORIDE
     Dosage: 1600 MG, UNK

REACTIONS (1)
  - Death [Fatal]
